FAERS Safety Report 4734108-8 (Version None)
Quarter: 2005Q3

REPORT INFORMATION
  Report Type: 
  Country: None (occurrence: None)
  Receive Date: 20050804
  Receipt Date: 20050726
  Transmission Date: 20060218
  Serious: Yes (Death, Life-Threatening, Hospitalization)
  Sender: FDA-Public Use
  Company Number: AT-JNJFOC-20050700395

PATIENT
  Age: 55 Year
  Sex: Male
  Weight: 65 kg

DRUGS (5)
  1. REMICADE [Suspect]
     Dosage: 3 INFUSIONS
     Route: 042
  2. BISOPROLOL [Concomitant]
     Route: 048
  3. BISOPROLOL [Concomitant]
     Indication: HYPERTENSION
     Dosage: THEN 0 AND 2.5MG
     Route: 048
  4. FLUNITRAZEPAM [Concomitant]
     Indication: SLEEP DISORDER THERAPY
     Route: 048
  5. ESOMEPRAZOL [Concomitant]
     Route: 048

REACTIONS (2)
  - ABSCESS SWEAT GLAND [None]
  - PNEUMONIA [None]
